FAERS Safety Report 19440145 (Version 1)
Quarter: 2021Q2

REPORT INFORMATION
  Report Type: Spontaneous
  Country: US (occurrence: US)
  Receive Date: 20210620
  Receipt Date: 20210620
  Transmission Date: 20210717
  Serious: No
  Sender: FDA-Public Use
  Company Number: US-BRISTOL-MYERS SQUIBB COMPANY-BMS-2021-059420

PATIENT
  Age: 75 Year
  Sex: Male
  Weight: 108.84 kg

DRUGS (2)
  1. OPDIVO [Suspect]
     Active Substance: NIVOLUMAB
     Indication: RENAL CANCER
     Dosage: 2 DOSES
     Route: 042
     Dates: start: 202010
  2. YERVOY [Suspect]
     Active Substance: IPILIMUMAB
     Indication: RENAL CANCER
     Dosage: 2 DOSES
     Route: 042
     Dates: start: 202010

REACTIONS (1)
  - Confusional state [Unknown]
